FAERS Safety Report 4916798-X (Version None)
Quarter: 2006Q1

REPORT INFORMATION
  Report Type: 
  Country: None (occurrence: None)
  Receive Date: 20060216
  Receipt Date: 20060216
  Transmission Date: 20060701
  Serious: Yes (Hospitalization)
  Sender: FDA-Public Use
  Company Number: None

PATIENT
  Age: 77 Year
  Sex: Female
  Weight: 71.2147 kg

DRUGS (9)
  1. BEVACIZUMAB (RHU MAB VEGF) VS PLACEBO [Suspect]
     Indication: PANCREATIC CARCINOMA
     Dosage: BEVACIZUMAB 710 MG
     Dates: start: 20051028, end: 20060130
  2. GEMZAR [Suspect]
     Dosage: GEMZAR
  3. HYDROCHLOROTHIAZIDE [Concomitant]
  4. ATENOLOL [Concomitant]
  5. ZOFRAN [Concomitant]
  6. PROTONIX [Concomitant]
  7. LISINOPRIL [Concomitant]
  8. DARVOCET [Concomitant]
  9. CHEMOTHERAPY STUDY CALGB #80303 [Concomitant]

REACTIONS (3)
  - DYSPNOEA [None]
  - OEDEMA PERIPHERAL [None]
  - RENAL FAILURE [None]
